FAERS Safety Report 5496469-4 (Version None)
Quarter: 2007Q4

REPORT INFORMATION
  Report Type: 
  Country: None (occurrence: None)
  Receive Date: 20071025
  Receipt Date: 20071011
  Transmission Date: 20080405
  Serious: Yes (Hospitalization)
  Sender: FDA-Public Use
  Company Number: ES-ELI_LILLY_AND_COMPANY-ES200710003393

PATIENT
  Age: 77 Year
  Sex: Male

DRUGS (7)
  1. FORTEO [Suspect]
     Indication: OSTEOPOROSIS
     Dosage: 20 UG, UNKNOWN
     Route: 058
     Dates: start: 20060901
  2. CORTICOSTEROID NOS [Concomitant]
     Indication: RHEUMATOID ARTHRITIS
     Dosage: UNK, UNKNOWN
     Route: 065
  3. MANIDON [Concomitant]
     Dosage: 80 MG, UNKNOWN
     Route: 065
  4. NITROGLYCERIN [Concomitant]
     Dosage: 10 MG, UNKNOWN
     Route: 065
  5. DACORTIN [Concomitant]
     Dosage: 10 MG, UNKNOWN
     Route: 065
  6. ATROVENT [Concomitant]
     Dosage: UNK, UNKNOWN
     Route: 065
  7. OMEPRAZOLE [Concomitant]
     Dosage: UNK, UNKNOWN
     Route: 065

REACTIONS (2)
  - EMPHYSEMA [None]
  - LOSS OF CONSCIOUSNESS [None]
